FAERS Safety Report 16376013 (Version 2)
Quarter: 2019Q2

REPORT INFORMATION
  Report Type: Spontaneous
  Country: UA (occurrence: UA)
  Receive Date: 20190531
  Receipt Date: 20190604
  Transmission Date: 20190711
  Serious: Yes (Hospitalization, Other)
  Sender: FDA-Public Use
  Company Number: UA-B.I. PHARMACEUTICALS,INC./RIDGEFIELD-2019-BI-023616

PATIENT
  Age: 31 Year
  Sex: Male

DRUGS (1)
  1. SYNJARDY [Suspect]
     Active Substance: EMPAGLIFLOZIN\METFORMIN HYDROCHLORIDE
     Indication: TYPE 2 DIABETES MELLITUS
     Dosage: AFTER USING 2 TABLETS OF SYNJARDY
     Route: 048

REACTIONS (2)
  - Loss of consciousness [Recovering/Resolving]
  - Euglycaemic diabetic ketoacidosis [Recovering/Resolving]
